FAERS Safety Report 6582310-5 (Version None)
Quarter: 2010Q1

REPORT INFORMATION
  Report Type: 
  Country: None (occurrence: None)
  Receive Date: 20100216
  Receipt Date: 20100209
  Transmission Date: 20100710
  Serious: Yes (Other)
  Sender: FDA-Public Use
  Company Number: US-RB-002626-10

PATIENT
  Age: 74 Year
  Sex: Female

DRUGS (2)
  1. DELSYM ADULT COUGH SYRUP [Suspect]
     Dosage: TAKING HALF THE DOSING AMOUNT TWICE A DAY
     Route: 048
     Dates: start: 20100206
  2. DELSYM ADULT COUGH SYRUP [Suspect]
     Dosage: TAKING HALF THE DOSING AMOUNT TWICE A DAY
     Route: 048
     Dates: start: 20100206

REACTIONS (1)
  - BLOOD GLUCOSE DECREASED [None]
